FAERS Safety Report 25769647 (Version 1)
Quarter: 2025Q3

REPORT INFORMATION
  Report Type: Spontaneous
  Country: US (occurrence: US)
  Receive Date: 20250906
  Receipt Date: 20250906
  Transmission Date: 20251020
  Serious: Yes (Hospitalization, Other)
  Sender: LUPIN
  Company Number: US-LUPIN PHARMACEUTICALS INC.-2025-07874

PATIENT
  Age: 56 Year
  Sex: Female

DRUGS (11)
  1. PALIPERIDONE [Suspect]
     Active Substance: PALIPERIDONE
     Indication: Product used for unknown indication
     Route: 065
  2. HALOPERIDOL [Suspect]
     Active Substance: HALOPERIDOL
     Indication: Product used for unknown indication
     Route: 065
  3. MIDAZOLAM [Concomitant]
     Active Substance: MIDAZOLAM
     Indication: Catatonia
     Dosage: 2 MILLIGRAM, BID
  4. MIDAZOLAM [Concomitant]
     Active Substance: MIDAZOLAM
     Dosage: 4 MILLIGRAM, TID (3?TIMES DAILY)
     Route: 065
  5. DIVALPROEX SODIUM [Concomitant]
     Active Substance: DIVALPROEX SODIUM
     Indication: Post-traumatic stress disorder
     Route: 065
  6. DIVALPROEX SODIUM [Concomitant]
     Active Substance: DIVALPROEX SODIUM
     Indication: Schizoaffective disorder bipolar type
  7. DULOXETINE [Concomitant]
     Active Substance: DULOXETINE
     Indication: Post-traumatic stress disorder
     Route: 065
  8. LORAZEPAM [Concomitant]
     Active Substance: LORAZEPAM
     Indication: Catatonia
  9. LORAZEPAM [Concomitant]
     Active Substance: LORAZEPAM
     Indication: Anxiety
     Dosage: 1 MILLIGRAM, BID
  10. LORAZEPAM [Concomitant]
     Active Substance: LORAZEPAM
     Route: 065
  11. DIAZEPAM [Concomitant]
     Active Substance: DIAZEPAM
     Indication: Catatonia

REACTIONS (6)
  - Neuroleptic malignant syndrome [Recovering/Resolving]
  - Tachypnoea [Unknown]
  - Hypertension [Unknown]
  - Tachycardia [Unknown]
  - Respiratory rate increased [Unknown]
  - Wrong product administered [Unknown]
